FAERS Safety Report 18501180 (Version 2)
Quarter: 2021Q3

REPORT INFORMATION
  Report Type: Spontaneous
  Country: IT (occurrence: IT)
  Receive Date: 20201113
  Receipt Date: 20210824
  Transmission Date: 20211014
  Serious: Yes (Other)
  Sender: FDA-Public Use
  Company Number: IT-MYLANLABS-2020M1093545

PATIENT
  Sex: Female

DRUGS (7)
  1. IMATINIB. [Suspect]
     Active Substance: IMATINIB MESYLATE
     Indication: CHRONIC MYELOID LEUKAEMIA
     Dosage: UNK
     Route: 065
     Dates: start: 201910
  2. IMATINIB. [Suspect]
     Active Substance: IMATINIB MESYLATE
     Dosage: UNK
     Route: 065
     Dates: start: 200203
  3. DASATINIB. [Suspect]
     Active Substance: DASATINIB
     Dosage: 140 MILLIGRAM, QD (70 MG, BID)
     Route: 065
     Dates: start: 200504
  4. DASATINIB. [Suspect]
     Active Substance: DASATINIB
     Dosage: 100 MG, QD
     Route: 065
     Dates: start: 200909
  5. DASATINIB. [Suspect]
     Active Substance: DASATINIB
     Indication: CHRONIC MYELOID LEUKAEMIA
     Dosage: 80 MG, QD
     Route: 065
     Dates: start: 201403, end: 201910
  6. IMATINIB. [Suspect]
     Active Substance: IMATINIB MESYLATE
     Dosage: 600 MG, QD
     Route: 065
     Dates: end: 200503
  7. DASATINIB. [Suspect]
     Active Substance: DASATINIB
     Dosage: 40 MILLIGRAM, QD (20 MG, BID)
     Route: 065

REACTIONS (10)
  - Haematotoxicity [Unknown]
  - Drug resistance [Unknown]
  - Pleural effusion [Unknown]
  - Drug ineffective [Unknown]
  - Cytogenetic analysis abnormal [Unknown]
  - Toxicity to various agents [Unknown]
  - Therapeutic response decreased [Unknown]
  - Dyspnoea [Unknown]
  - Cytogenetic abnormality [Unknown]
  - Infection [Unknown]

NARRATIVE: CASE EVENT DATE: 200404
